FAERS Safety Report 9344156 (Version 2)
Quarter: 2013Q3

REPORT INFORMATION
  Report Type: Spontaneous
  Country: US (occurrence: US)
  Receive Date: 20130612
  Receipt Date: 20130815
  Transmission Date: 20140515
  Serious: Yes (Other)
  Sender: FDA-Public Use
  Company Number: US-BAYER-2013-069822

PATIENT
  Age: 32 Year
  Sex: Female
  Weight: 72.56 kg

DRUGS (5)
  1. MIRENA [Suspect]
     Indication: CONTRACEPTION
     Dosage: 20 MCG/24HR, CONT
     Route: 015
     Dates: start: 20121217, end: 20130417
  2. AUGMENTIN [Concomitant]
     Indication: INFECTION PROPHYLAXIS
     Dosage: UNK UNK, BID
     Route: 048
     Dates: start: 20121217, end: 20121223
  3. SYNTHROID [Concomitant]
  4. CALADRYL [CALAMINE,DIPHENHYDRAMINE HYDROCHLORIDE] [Concomitant]
  5. PREMARIN [Concomitant]
     Dosage: 0.625 MG/GM

REACTIONS (3)
  - Genital haemorrhage [Recovering/Resolving]
  - Genital infection [None]
  - Vaginal odour [None]
